FAERS Safety Report 22165685 (Version 1)
Quarter: 2023Q2

REPORT INFORMATION
  Report Type: Spontaneous
  Country: BR (occurrence: BR)
  Receive Date: 20230403
  Receipt Date: 20230403
  Transmission Date: 20230721
  Serious: Yes (Other)
  Sender: FDA-Public Use
  Company Number: BR-MACLEODS PHARMACEUTICALS US LTD-MAC2023040556

PATIENT

DRUGS (2)
  1. LIDOCAINE 5% [Suspect]
     Active Substance: LIDOCAINE
     Indication: Spinal anaesthesia
     Dosage: 50 MILLIGRAM, SINGLE
     Route: 065
     Dates: start: 200001
  2. PROPOFOL [Concomitant]
     Active Substance: PROPOFOL
     Indication: Sedative therapy
     Dosage: 40 MILLIGRAM, SINGLE
     Route: 065

REACTIONS (3)
  - Type I hypersensitivity [Recovered/Resolved]
  - Angioedema [Recovered/Resolved]
  - Rash erythematous [Recovered/Resolved]
